FAERS Safety Report 17649456 (Version 1)
Quarter: 2020Q2

REPORT INFORMATION
  Report Type: Spontaneous
  Country: US (occurrence: US)
  Receive Date: 20200408
  Receipt Date: 20200408
  Transmission Date: 20200713
  Serious: Yes (Death)
  Sender: FDA-Public Use
  Company Number: None

PATIENT
  Age: 65 Year
  Sex: Female
  Weight: 90.72 kg

DRUGS (11)
  1. CEFTRIAXONE. [Concomitant]
     Active Substance: CEFTRIAXONE
     Dates: start: 20200331, end: 20200401
  2. HYDROXYCHLOROQUINE SULFATE TABLETS [Suspect]
     Active Substance: HYDROXYCHLOROQUINE SULFATE
     Indication: CORONAVIRUS INFECTION
     Route: 048
     Dates: start: 20200331, end: 20200331
  3. AZITHROMYCIN 500 MG [Concomitant]
     Active Substance: AZITHROMYCIN ANHYDROUS
     Dates: start: 20200331, end: 20200401
  4. ACETAMINOPHEN. [Concomitant]
     Active Substance: ACETAMINOPHEN
     Dates: start: 20200331, end: 20200401
  5. OSELTAMIVIR PHOSPHATE. [Concomitant]
     Active Substance: OSELTAMIVIR PHOSPHATE
     Dates: start: 20200331, end: 20200401
  6. ATROPINE. [Concomitant]
     Active Substance: ATROPINE
     Dates: start: 20200401, end: 20200401
  7. SODIUM CHLORIDE 0.9% 1000 ML [Concomitant]
     Dates: start: 20200331, end: 20200401
  8. EPINEPHRINE. [Concomitant]
     Active Substance: EPINEPHRINE
     Dates: start: 20200401, end: 20200401
  9. PANTOPRAZOLE SODIUM. [Concomitant]
     Active Substance: PANTOPRAZOLE SODIUM
     Dates: start: 20200331, end: 20200401
  10. ZOSYN 3.375 G [Concomitant]
     Dates: start: 20200331, end: 20200331
  11. SODIUM BICARBONATE. [Concomitant]
     Active Substance: SODIUM BICARBONATE
     Dates: start: 20200401, end: 20200401

REACTIONS (1)
  - Coronavirus test positive [None]

NARRATIVE: CASE EVENT DATE: 20200401
